FAERS Safety Report 9402573 (Version 1)
Quarter: 2013Q3

REPORT INFORMATION
  Report Type: Spontaneous
  Country: FR (occurrence: FR)
  Receive Date: 20130716
  Receipt Date: 20130716
  Transmission Date: 20140515
  Serious: Yes (Hospitalization)
  Sender: FDA-Public Use
  Company Number: FR-ASTRAZENECA-2013SE51293

PATIENT
  Age: 274 Month
  Sex: Male
  Weight: 43 kg

DRUGS (16)
  1. INEXIUM [Suspect]
     Route: 048
     Dates: start: 2012, end: 2013
  2. INEXIUM [Suspect]
     Route: 048
     Dates: start: 2013
  3. CELLCEPT [Suspect]
     Route: 048
     Dates: start: 20130328
  4. CELLCEPT [Suspect]
     Route: 048
     Dates: start: 20130328
  5. TRACLEER [Suspect]
     Route: 048
     Dates: start: 2012
  6. ERYTHROCINE [Suspect]
     Indication: GASTROINTESTINAL DISORDER
     Route: 048
     Dates: start: 20130425
  7. OXYNORM [Concomitant]
  8. OXYCONTIN [Concomitant]
  9. REVATIO [Concomitant]
  10. CORTANCYL [Concomitant]
  11. TRIATEC [Concomitant]
  12. ASPEGIC [Concomitant]
  13. LEVOTHYROX [Concomitant]
  14. ARANESP [Concomitant]
  15. MOTILIUM [Concomitant]
  16. PRIMPERAN [Concomitant]

REACTIONS (3)
  - Hypokalaemia [Not Recovered/Not Resolved]
  - Pancytopenia [Not Recovered/Not Resolved]
  - Vomiting [Not Recovered/Not Resolved]
